FAERS Safety Report 17203113 (Version 2)
Quarter: 2020Q1

REPORT INFORMATION
  Report Type: Spontaneous
  Country: US (occurrence: US)
  Receive Date: 20191226
  Receipt Date: 20200308
  Transmission Date: 20200409
  Serious: No
  Sender: FDA-Public Use
  Company Number: US-TEVA-2019-US-1156871

PATIENT
  Sex: Female

DRUGS (2)
  1. ACICLOVIR TEVA [Suspect]
     Active Substance: ACYCLOVIR
     Indication: HERPES VIRUS INFECTION
     Dosage: TAKING IT EVERY OTHER DAY
     Route: 065
     Dates: start: 2002
  2. ACYCLOVIR CAMBER [Suspect]
     Active Substance: ACYCLOVIR
     Indication: HERPES VIRUS INFECTION
     Route: 065
     Dates: start: 2019

REACTIONS (4)
  - Dyschezia [Not Recovered/Not Resolved]
  - Drug ineffective [Unknown]
  - Gastrointestinal pain [Not Recovered/Not Resolved]
  - Muscle spasms [Not Recovered/Not Resolved]
